FAERS Safety Report 23304311 (Version 1)
Quarter: 2023Q4

REPORT INFORMATION
  Report Type: Spontaneous
  Country: US (occurrence: None)
  Receive Date: 20231218
  Receipt Date: 20231218
  Transmission Date: 20240109
  Serious: No
  Sender: FDA-Public Use
  Company Number: 2023A280243

PATIENT

DRUGS (1)
  1. LYNPARZA [Suspect]
     Active Substance: OLAPARIB
     Route: 048

REACTIONS (5)
  - Feeling abnormal [Unknown]
  - Neuropathy peripheral [Unknown]
  - Disturbance in attention [Unknown]
  - Nausea [Unknown]
  - Fatigue [Unknown]
